FAERS Safety Report 17290356 (Version 1)
Quarter: 2020Q1

REPORT INFORMATION
  Report Type: Report from Study
  Country: None (occurrence: US)
  Receive Date: 20200121
  Receipt Date: 20200121
  Transmission Date: 20200409
  Serious: Yes (Other)
  Sender: FDA-Public Use
  Company Number: US-ABBVIE-19K-163-3202982-00

PATIENT
  Age: 67 Year
  Sex: Female

DRUGS (1)
  1. HUMIRA [Suspect]
     Active Substance: ADALIMUMAB
     Indication: RHEUMATOID ARTHRITIS
     Route: 058
     Dates: end: 20191030

REACTIONS (13)
  - Gait disturbance [Not Recovered/Not Resolved]
  - Malaise [Unknown]
  - Sinusitis [Unknown]
  - Arthralgia [Unknown]
  - Dizziness [Unknown]
  - Musculoskeletal stiffness [Not Recovered/Not Resolved]
  - Rash [Unknown]
  - Oral candidiasis [Unknown]
  - Procedural haemorrhage [Recovered/Resolved]
  - Tooth extraction [Unknown]
  - Loss of personal independence in daily activities [Not Recovered/Not Resolved]
  - Pain [Not Recovered/Not Resolved]
  - Gastroenteritis viral [Unknown]

NARRATIVE: CASE EVENT DATE: 201912
